FAERS Safety Report 13805055 (Version 2)
Quarter: 2018Q3

REPORT INFORMATION
  Report Type: Spontaneous
  Country: US (occurrence: US)
  Receive Date: 20170728
  Receipt Date: 20180722
  Transmission Date: 20181010
  Serious: Yes (Congenital Anomaly)
  Sender: FDA-Public Use
  Company Number: US-BIOGEN-2017BI00437990

PATIENT
  Sex: Female

DRUGS (1)
  1. TYSABRI [Suspect]
     Active Substance: NATALIZUMAB
     Indication: MATERNAL EXPOSURE TIMING UNSPECIFIED
     Route: 064
     Dates: start: 20100903, end: 20170224

REACTIONS (4)
  - Kidney enlargement [Unknown]
  - Renal aplasia [Not Recovered/Not Resolved]
  - Foetal exposure timing unspecified [Recovered/Resolved]
  - Reflux nephropathy [Unknown]
